FAERS Safety Report 8764831 (Version 1)
Quarter: 2012Q4

REPORT INFORMATION
  Report Type: Report from Study
  Country: TR (occurrence: TR)
  Receive Date: 20120831
  Receipt Date: 20120831
  Transmission Date: 20130627
  Serious: Yes (Other)
  Sender: FDA-Public Use
  Company Number: TR-ROCHE-1113018

PATIENT
  Sex: Female

DRUGS (1)
  1. XELODA [Suspect]
     Indication: BREAST CANCER
     Dosage: dose As reported: 500 mg 4+4
     Route: 048
     Dates: start: 20111201, end: 20120810

REACTIONS (1)
  - Mastectomy [Not Recovered/Not Resolved]
